FAERS Safety Report 19196375 (Version 1)
Quarter: 2021Q2

REPORT INFORMATION
  Report Type: Spontaneous
  Country: GB (occurrence: GB)
  Receive Date: 20210429
  Receipt Date: 20210429
  Transmission Date: 20210717
  Serious: Yes (Other)
  Sender: FDA-Public Use
  Company Number: GB-GILEAD-2021-0527293

PATIENT
  Age: 50 Year
  Sex: Male

DRUGS (1)
  1. YESCARTA [Suspect]
     Active Substance: AXICABTAGENE CILOLEUCEL
     Indication: LYMPHOMA TRANSFORMATION
     Dosage: UNK
     Route: 042
     Dates: start: 20200526, end: 20200526

REACTIONS (1)
  - Follicular lymphoma [Not Recovered/Not Resolved]

NARRATIVE: CASE EVENT DATE: 20210403
